FAERS Safety Report 13026231 (Version 2)
Quarter: 2016Q4

REPORT INFORMATION
  Report Type: Spontaneous
  Country: BR (occurrence: BR)
  Receive Date: 20161214
  Receipt Date: 20161216
  Transmission Date: 20170207
  Serious: Yes (Life-Threatening, Other)
  Sender: FDA-Public Use
  Company Number: PHHY2016BR171776

PATIENT
  Sex: Female
  Weight: 60 kg

DRUGS (1)
  1. GILENYA [Suspect]
     Active Substance: FINGOLIMOD HYDROCHLORIDE
     Indication: MULTIPLE SCLEROSIS
     Dosage: 1 DF, QD
     Route: 048

REACTIONS (5)
  - Suicide attempt [Unknown]
  - Paraesthesia [Recovered/Resolved]
  - Intentional overdose [Unknown]
  - Perinatal depression [Unknown]
  - Headache [Recovering/Resolving]
